FAERS Safety Report 7573718-X (Version None)
Quarter: 2011Q2

REPORT INFORMATION
  Report Type: 
  Country: None (occurrence: None)
  Receive Date: 20110627
  Receipt Date: 20110614
  Transmission Date: 20111010
  Serious: Yes (Hospitalization)
  Sender: FDA-Public Use
  Company Number: JP-ROCHE-782984

PATIENT
  Sex: Female

DRUGS (4)
  1. ACTEMRA [Suspect]
     Indication: RHEUMATOID ARTHRITIS
     Dosage: FORM: INGJECTION
     Route: 041
     Dates: start: 20081128, end: 20090804
  2. PREDNISOLONE [Concomitant]
     Route: 048
  3. ACTEMRA [Suspect]
     Dosage: FORM: INGJECTION
     Route: 041
     Dates: start: 20091013, end: 20091105
  4. PROGRAF [Suspect]
     Route: 048

REACTIONS (1)
  - HYPONATRAEMIA [None]
